FAERS Safety Report 8510858-2 (Version None)
Quarter: 2012Q3

REPORT INFORMATION
  Report Type: 
  Country: None (occurrence: None)
  Receive Date: 20120703
  Receipt Date: 20120618
  Transmission Date: 20120928
  Serious: Yes (Other)
  Sender: FDA-Public Use
  Company Number: 2012AP001876

PATIENT
  Age: 65 Year
  Sex: Male

DRUGS (2)
  1. LATANOPROST [Suspect]
     Indication: GLAUCOMA
     Dosage: 0.005 PCT, OPH
     Route: 047
  2. SYSTANE (RHINARIS) [Concomitant]

REACTIONS (4)
  - PRODUCT SUBSTITUTION ISSUE [None]
  - OCULAR HYPERAEMIA [None]
  - EYE PRURITUS [None]
  - EYE PAIN [None]
